FAERS Safety Report 5572189-2 (Version None)
Quarter: 2007Q4

REPORT INFORMATION
  Report Type: 
  Country: None (occurrence: None)
  Receive Date: 20071221
  Receipt Date: 20071210
  Transmission Date: 20080405
  Serious: Yes (Other)
  Sender: FDA-Public Use
  Company Number: US-PFIZER INC-2007104890

PATIENT
  Sex: Female
  Weight: 55.3 kg

DRUGS (6)
  1. DILANTIN [Suspect]
     Indication: CONVULSION
  2. VALIUM [Concomitant]
  3. KEPPRA [Concomitant]
  4. RESTORIL [Concomitant]
  5. PRILOSEC [Concomitant]
  6. ALL OTHER THERAPEUTIC PRODUCTS [Concomitant]

REACTIONS (2)
  - CONVULSION [None]
  - LOSS OF CONSCIOUSNESS [None]
